FAERS Safety Report 8912149 (Version 1)
Quarter: 2012Q4

REPORT INFORMATION
  Report Type: 
  Country: GB (occurrence: GB)
  Receive Date: 20121115
  Receipt Date: 20121115
  Transmission Date: 20130627
  Serious: Yes (Death)
  Sender: FDA-Public Use
  Company Number: GB-GILEAD-2012-0064530

PATIENT
  Sex: Female

DRUGS (1)
  1. EVIPLERA [Suspect]
     Indication: HIV TEST POSITIVE

REACTIONS (2)
  - Death [Fatal]
  - Malaise [None]
